FAERS Safety Report 8453564-5 (Version None)
Quarter: 2012Q2

REPORT INFORMATION
  Report Type: 
  Country: None (occurrence: None)
  Receive Date: 20120323
  Receipt Date: 20111115
  Transmission Date: 20120825
  Serious: Yes (Other)
  Sender: FDA-Public Use
  Company Number: 163-21880-11092464

PATIENT
  Age: 68 Year
  Sex: Female

DRUGS (12)
  1. LOPRESSOR [Concomitant]
  2. DEXAMETHASONE [Concomitant]
  3. SYNTHROID [Concomitant]
  4. REVLIMID [Suspect]
     Indication: MULTIPLE MYELOMA
     Dosage: 25 MG, 1 IN 1 D, PO, 15 MG, 1 IN 1 D, PO
     Route: 048
     Dates: start: 20110826
  5. REVLIMID [Suspect]
     Indication: MULTIPLE MYELOMA
     Dosage: 25 MG, 1 IN 1 D, PO, 15 MG, 1 IN 1 D, PO
     Route: 048
     Dates: start: 20110919
  6. PRAVACHOL [Concomitant]
  7. CYMBALTA [Concomitant]
  8. ESTROPIPATE [Concomitant]
  9. DILTIAZEM [Concomitant]
  10. DIOVAN [Concomitant]
  11. COUMADIN [Concomitant]
  12. MULTIVITAMIN [Concomitant]

REACTIONS (9)
  - FACE OEDEMA [None]
  - CONSTIPATION [None]
  - OEDEMA PERIPHERAL [None]
  - DIARRHOEA [None]
  - ANAEMIA [None]
  - ASTHENIA [None]
  - MUSCLE SPASMS [None]
  - DYSPNOEA EXERTIONAL [None]
  - ARTHRALGIA [None]
